FAERS Safety Report 25508341 (Version 1)
Quarter: 2025Q3

REPORT INFORMATION
  Report Type: Spontaneous
  Country: EU (occurrence: EU)
  Receive Date: 20250703
  Receipt Date: 20250703
  Transmission Date: 20251021
  Serious: Yes (Other)
  Sender: HETERO
  Company Number: None

PATIENT
  Age: 90 Year
  Sex: Female
  Weight: 53 kg

DRUGS (4)
  1. CITALOPRAM [Suspect]
     Active Substance: CITALOPRAM
     Indication: Depression
     Route: 048
     Dates: start: 20250317
  2. CITALOPRAM [Suspect]
     Active Substance: CITALOPRAM
     Route: 048
     Dates: start: 20250326, end: 20250602
  3. FENTANYL [Concomitant]
     Active Substance: FENTANYL
     Indication: Fracture pain
     Route: 062
     Dates: start: 20250420
  4. OXYCODONE [Concomitant]
     Active Substance: OXYCODONE
     Indication: Pain
     Route: 048
     Dates: start: 20250419

REACTIONS (5)
  - Spinal fracture [Not Recovered/Not Resolved]
  - Delusion [Recovered/Resolved]
  - Abnormal behaviour [Recovered/Resolved]
  - Disorientation [Recovered/Resolved]
  - Aggression [Recovered/Resolved]
